FAERS Safety Report 23347438 (Version 4)
Quarter: 2024Q3

REPORT INFORMATION
  Report Type: Report from Study
  Country: IE (occurrence: None)
  Receive Date: 20231228
  Receipt Date: 20240822
  Transmission Date: 20241017
  Serious: Yes (Hospitalization)
  Sender: ASTRAZENECA
  Company Number: 2023A166975

PATIENT
  Age: 15959 Day
  Sex: Male

DRUGS (6)
  1. FASENRA [Suspect]
     Active Substance: BENRALIZUMAB
     Indication: Asthma
     Dosage: UNKNOWN
     Route: 058
     Dates: start: 20230629
  2. FASENRA [Suspect]
     Active Substance: BENRALIZUMAB
     Indication: Asthma
     Dosage: 30.0MG UNKNOWN
     Route: 058
     Dates: start: 20230928
  3. SYMBICORT [Concomitant]
     Active Substance: BUDESONIDE\FORMOTEROL FUMARATE DIHYDRATE
     Dosage: 400 MG, FREQUENCY UNKNOWN UNKNOWN
     Route: 050
  4. SPIRIVA [Concomitant]
     Active Substance: TIOTROPIUM BROMIDE MONOHYDRATE
     Dosage: 2.5MG UNKNOWN
     Route: 050
  5. MONTELUKAST [Concomitant]
     Active Substance: MONTELUKAST SODIUM
     Dosage: 10.0MG UNKNOWN
     Route: 050
  6. FLUTICASONE FUROATE [Concomitant]
     Active Substance: FLUTICASONE FUROATE
     Dosage: 1.0MG UNKNOWN
     Route: 050

REACTIONS (11)
  - Myopericarditis [Recovering/Resolving]
  - Nasal congestion [Unknown]
  - Throat irritation [Recovering/Resolving]
  - Malaise [Recovering/Resolving]
  - Peak expiratory flow rate decreased [Recovering/Resolving]
  - Oxygen saturation decreased [Recovering/Resolving]
  - Rhinorrhoea [Recovering/Resolving]
  - Sinonasal obstruction [Recovering/Resolving]
  - Infection [Unknown]
  - Eosinophil count increased [Unknown]
  - Headache [Recovering/Resolving]

NARRATIVE: CASE EVENT DATE: 20230629
